FAERS Safety Report 18425860 (Version 2)
Quarter: 2020Q4

REPORT INFORMATION
  Report Type: Spontaneous
  Country: US (occurrence: US)
  Receive Date: 20201026
  Receipt Date: 20201218
  Transmission Date: 20210114
  Serious: Yes (Other)
  Sender: FDA-Public Use
  Company Number: US-TORRENT-00010505

PATIENT
  Age: 47 Year
  Sex: Female

DRUGS (1)
  1. SILDENAFIL. [Suspect]
     Active Substance: SILDENAFIL
     Indication: PULMONARY HYPERTENSION
     Dosage: UNKNOWN

REACTIONS (3)
  - Blindness [Recovering/Resolving]
  - Maculopathy [Recovering/Resolving]
  - Headache [Recovered/Resolved]
